FAERS Safety Report 24081497 (Version 2)
Quarter: 2024Q3

REPORT INFORMATION
  Report Type: Spontaneous
  Country: US (occurrence: US)
  Receive Date: 20240712
  Receipt Date: 20240723
  Transmission Date: 20241017
  Serious: No
  Sender: ELI LILLY AND CO
  Company Number: US-ELI_LILLY_AND_COMPANY-US202407004903

PATIENT
  Age: 90 Year
  Sex: Female

DRUGS (3)
  1. CYMBALTA [Suspect]
     Active Substance: DULOXETINE HYDROCHLORIDE
     Indication: Pudendal canal syndrome
     Dosage: 60 MG, UNKNOWN
     Route: 048
     Dates: start: 2018, end: 202401
  2. CYMBALTA [Suspect]
     Active Substance: DULOXETINE HYDROCHLORIDE
     Indication: Urinary tract infection
  3. DULOXETINE HYDROCHLORIDE [Suspect]
     Active Substance: DULOXETINE HYDROCHLORIDE
     Indication: Product used for unknown indication
     Dosage: UNK, UNKNOWN
     Route: 065
     Dates: end: 202404

REACTIONS (5)
  - Toothache [Unknown]
  - Off label use [Unknown]
  - Pruritus [Unknown]
  - Pain in extremity [Unknown]
  - Tremor [Unknown]
